FAERS Safety Report 6694311-7 (Version None)
Quarter: 2010Q2

REPORT INFORMATION
  Report Type: 
  Country: None (occurrence: None)
  Receive Date: 20100423
  Receipt Date: 20100416
  Transmission Date: 20101027
  Serious: Yes (Death, Life-Threatening, Hospitalization)
  Sender: FDA-Public Use
  Company Number: TW-PFIZER INC-2008057200

PATIENT
  Age: 39 Year
  Sex: Male
  Weight: 83 kg

DRUGS (7)
  1. IRINOTECAN HCL [Suspect]
     Indication: COLORECTAL CANCER METASTATIC
     Dosage: 360 MG, EVERY 2 WEEKS
     Route: 042
     Dates: start: 20071105, end: 20080529
  2. *PLACEBO [Suspect]
     Indication: COLORECTAL CANCER METASTATIC
     Dosage: 0 MG, 1X/DAY
     Route: 048
     Dates: start: 20071105, end: 20080630
  3. FLUOROURACIL [Suspect]
     Indication: COLORECTAL CANCER METASTATIC
     Dosage: 800 MG, EVERY 2 WEEKS
     Route: 040
     Dates: start: 20071105, end: 20080531
  4. FLUOROURACIL [Suspect]
     Dosage: 4800 MG, EVERY 2 WEEKS
     Route: 042
     Dates: start: 20071105, end: 20080531
  5. *CALCIUM FOLINATE [Suspect]
     Indication: COLORECTAL CANCER METASTATIC
     Dosage: 800 MG, EVERY 2 WEEKS
     Route: 042
     Dates: start: 20071105, end: 20080529
  6. OXALIPLATIN [Concomitant]
     Route: 042
     Dates: start: 20080702
  7. CAPECITABINE [Concomitant]
     Route: 048
     Dates: start: 20080702

REACTIONS (2)
  - DUODENAL ULCER [None]
  - HEPATIC FAILURE [None]
